FAERS Safety Report 14112071 (Version 4)
Quarter: 2020Q3

REPORT INFORMATION
  Report Type: Report from Study
  Country: KR (occurrence: KR)
  Receive Date: 20171020
  Receipt Date: 20200826
  Transmission Date: 20201102
  Serious: Yes (Hospitalization)
  Sender: FDA-Public Use
  Company Number: KR-TAKEDA-2017TUS021914

PATIENT
  Age: 76 Year
  Sex: Female
  Weight: 51 kg

DRUGS (11)
  1. AMITRIPTYLINE HCL [Concomitant]
     Active Substance: AMITRIPTYLINE
     Dosage: 5 MILLIGRAM
     Route: 048
     Dates: start: 20170602
  2. ACETANILIDE W/ASCORBIC ACID/PHENIRAMINE MALEA [Concomitant]
     Indication: VITAMIN SUPPLEMENTATION
     Dosage: 2 MILLILITER
     Route: 042
     Dates: start: 20170616, end: 20170616
  3. ALPRAZOLAM. [Concomitant]
     Active Substance: ALPRAZOLAM
     Indication: MAJOR DEPRESSION
     Dosage: 0.5 MILLIGRAM
     Route: 048
     Dates: start: 20170616, end: 20170623
  4. DOMPERIDONE [Concomitant]
     Active Substance: DOMPERIDONE
     Indication: DYSPEPSIA
     Dosage: 10 MILLIGRAM
     Route: 048
     Dates: start: 20170616, end: 20170623
  5. NORMAL SALINE [Concomitant]
     Active Substance: SODIUM CHLORIDE
     Indication: VITAMIN SUPPLEMENTATION
     Dosage: 100 MILLILITER
     Route: 042
     Dates: start: 20170616, end: 20170616
  6. BUSPIRONE HCL [Concomitant]
     Active Substance: BUSPIRONE HYDROCHLORIDE
     Indication: MAJOR DEPRESSION
     Dosage: 0.75 MILLIGRAM
     Route: 048
     Dates: start: 20170523, end: 20170614
  7. PROPRANOLOL HCL [Concomitant]
     Active Substance: PROPRANOLOL HYDROCHLORIDE
     Indication: MAJOR DEPRESSION
     Dosage: 60 MILLIGRAM
     Route: 048
     Dates: start: 20170602, end: 20170623
  8. ETIZOLAM [Concomitant]
     Active Substance: ETIZOLAM
     Indication: MAJOR DEPRESSION
     Dosage: 1 MILLIGRAM
     Route: 048
     Dates: start: 20170530
  9. VORTIOXETINE. [Suspect]
     Active Substance: VORTIOXETINE
     Indication: DEPRESSION
     Dosage: 5 MILLIGRAM, QD
     Route: 048
     Dates: start: 20170523, end: 20170623
  10. AMITRIPTYLINE HCL [Concomitant]
     Active Substance: AMITRIPTYLINE
     Indication: MAJOR DEPRESSION
     Dosage: 10 MILLIGRAM
     Route: 048
     Dates: start: 20170621
  11. BEECOM HEXA [Concomitant]
     Indication: VITAMIN SUPPLEMENTATION
     Dosage: 2 MILLILITER
     Route: 042
     Dates: start: 20170616, end: 20170616

REACTIONS (3)
  - Tremor [Recovered/Resolved]
  - Dizziness [Recovered/Resolved]
  - Headache [Recovered/Resolved]

NARRATIVE: CASE EVENT DATE: 20170613
